FAERS Safety Report 7372419-0 (Version None)
Quarter: 2011Q1

REPORT INFORMATION
  Report Type: 
  Country: None (occurrence: None)
  Receive Date: 20110324
  Receipt Date: 20100823
  Transmission Date: 20110831
  Serious: Yes (Other)
  Sender: FDA-Public Use
  Company Number: PHHY2010DE90824

PATIENT
  Sex: Female

DRUGS (1)
  1. EXTAVIA [Suspect]
     Dosage: UNK
     Route: 058
     Dates: start: 20100722

REACTIONS (6)
  - STRESS [None]
  - SKIN IRRITATION [None]
  - CRYING [None]
  - WEIGHT DECREASED [None]
  - DEPRESSED MOOD [None]
  - FEAR [None]
